FAERS Safety Report 8972466 (Version 1)
Quarter: 2012Q4

REPORT INFORMATION
  Report Type: 
  Country: US (occurrence: US)
  Receive Date: 20121218
  Receipt Date: 20121218
  Transmission Date: 20130627
  Serious: No
  Sender: FDA-Public Use
  Company Number: US-ASTRAZENECA-2010SE41340

PATIENT
  Age: 73 Year
  Sex: Female
  Weight: 86.2 kg

DRUGS (4)
  1. CRESTOR [Suspect]
     Indication: CARDIAC DISORDER
     Route: 048
  2. NORVASC [Concomitant]
     Indication: BLOOD PRESSURE ABNORMAL
  3. MAXIDE [Concomitant]
     Indication: POLYURIA
  4. LIPITOR [Concomitant]
     Indication: PAIN
     Route: 065

REACTIONS (8)
  - Blood pressure increased [Unknown]
  - Chromaturia [Unknown]
  - Myalgia [Unknown]
  - Musculoskeletal pain [Unknown]
  - Pain in extremity [Unknown]
  - Fatigue [Unknown]
  - Sleep disorder [Unknown]
  - Myalgia [Unknown]
